FAERS Safety Report 5739127-0 (Version None)
Quarter: 2008Q2

REPORT INFORMATION
  Report Type: 
  Country: None (occurrence: None)
  Receive Date: 20080515
  Receipt Date: 20080508
  Transmission Date: 20081010
  Serious: Yes (Other)
  Sender: FDA-Public Use
  Company Number: A0722860A

PATIENT
  Age: 8 Year
  Sex: Female
  Weight: 32.7 kg

DRUGS (4)
  1. FLOVENT [Suspect]
     Indication: ASTHMA
     Dosage: 2PUFF TWICE PER DAY
     Route: 055
     Dates: start: 20060101
  2. ZYRTEC [Concomitant]
  3. PROZAC [Concomitant]
  4. XOPENEX [Concomitant]

REACTIONS (5)
  - CUSHINGOID [None]
  - FATIGUE [None]
  - ILL-DEFINED DISORDER [None]
  - PITUITARY-DEPENDENT CUSHING'S SYNDROME [None]
  - SKIN STRIAE [None]
